FAERS Safety Report 6699488-5 (Version None)
Quarter: 2010Q2

REPORT INFORMATION
  Report Type: 
  Country: None (occurrence: None)
  Receive Date: 20100426
  Receipt Date: 20100408
  Transmission Date: 20101027
  Serious: Yes (Life-Threatening, Hospitalization)
  Sender: FDA-Public Use
  Company Number: WAES 1004CAN00001

PATIENT
  Age: 39 Year
  Sex: Male

DRUGS (4)
  1. RELTEGRAVIR POTASSIUM [Suspect]
     Indication: HIV INFECTION
     Dosage: 600 MG/BID/PO
     Route: 048
     Dates: start: 20050418, end: 20080730
  2. TENOFOVIR DISOPROXIL FUMARATE [Suspect]
     Indication: HIV INFECTION
     Dosage: 300 MG/DAILY PO
     Route: 048
     Dates: start: 20050418, end: 20080730
  3. TAB LAMIVUDINE [Suspect]
     Indication: HIV INFECTION
     Dosage: 300 MG/DAILY/PO
     Route: 048
     Dates: start: 20050418, end: 20080730
  4. PLACEBO (UNSPECIFIED) [Suspect]
     Indication: HIV INFECTION
     Route: 048

REACTIONS (7)
  - COLORECTAL CANCER STAGE IV [None]
  - HAEMORRHAGE [None]
  - METASTASES TO LIVER [None]
  - METASTASES TO PERITONEUM [None]
  - PROCEDURAL COMPLICATION [None]
  - RASH [None]
  - SYPHILIS [None]
